FAERS Safety Report 10570161 (Version 4)
Quarter: 2015Q1

REPORT INFORMATION
  Report Type: Spontaneous
  Country: JP (occurrence: None)
  Receive Date: 20141106
  Receipt Date: 20150122
  Transmission Date: 20150720
  Serious: Yes (Hospitalization)
  Sender: FDA-Public Use
  Company Number: 2605767

PATIENT
  Age: 1 Year
  Sex: Female
  Weight: 4 kg

DRUGS (11)
  1. DEXMEDETOMIDINE HYDROCHLORIDE. [Suspect]
     Active Substance: DEXMEDETOMIDINE HYDROCHLORIDE
     Indication: SEDATIVE THERAPY
     Dosage: 1 MCG/KG/HR, 1 DAY, INTRAVENOUS DRIP
     Route: 041
     Dates: start: 20140401, end: 20140416
  2. OLPRINONE HYDROCHLORIDE [Concomitant]
     Active Substance: OLPRINONE HYDROCHLORIDE
  3. SILDENAFIL CITRATE. [Concomitant]
     Active Substance: SILDENAFIL CITRATE
  4. MIDAZOLAM [Concomitant]
     Active Substance: MIDAZOLAM\MIDAZOLAM HYDROCHLORIDE
  5. ANTIBIOTICS-RESISTANT LACTIC ACID BACTERIAE [Concomitant]
     Active Substance: UNSPECIFIED INGREDIENT
  6. SPIRONOLACTONE. [Concomitant]
     Active Substance: SPIRONOLACTONE
  7. ASPIRIN. [Concomitant]
     Active Substance: ASPIRIN
  8. LEVOCARNITINE. [Concomitant]
     Active Substance: LEVOCARNITINE
  9. FUROSEMIDE. [Concomitant]
     Active Substance: FUROSEMIDE
  10. FENTANYL CITRATE. [Concomitant]
     Active Substance: FENTANYL CITRATE
  11. ENALAPRIL MALEATE. [Concomitant]
     Active Substance: ENALAPRIL MALEATE

REACTIONS (11)
  - Cardiac failure [None]
  - Inadequate analgesia [None]
  - Pyrexia [None]
  - Blood urea increased [None]
  - Blood pressure decreased [None]
  - Agitation [None]
  - Infection [None]
  - Drug withdrawal syndrome [None]
  - Tachycardia [None]
  - Dehydration [None]
  - Hyperkalaemia [None]

NARRATIVE: CASE EVENT DATE: 20140416
